FAERS Safety Report 17673269 (Version 2)
Quarter: 2020Q2

REPORT INFORMATION
  Report Type: Spontaneous
  Country: ES (occurrence: ES)
  Receive Date: 20200416
  Receipt Date: 20200418
  Transmission Date: 20200713
  Serious: Yes (Death, Hospitalization)
  Sender: FDA-Public Use
  Company Number: ES-ABBVIE-20K-144-3366111-00

PATIENT
  Age: 69 Year
  Sex: Male

DRUGS (4)
  1. RITUXIMAB. [Suspect]
     Active Substance: RITUXIMAB
     Indication: PRODUCT USED FOR UNKNOWN INDICATION
     Route: 065
     Dates: start: 20200302
  2. KALETRA [Suspect]
     Active Substance: LOPINAVIR\RITONAVIR
     Indication: CORONAVIRUS INFECTION
     Route: 065
     Dates: start: 202003
  3. KALETRA [Suspect]
     Active Substance: LOPINAVIR\RITONAVIR
     Indication: PNEUMONIA
  4. VENETOCLAX. [Suspect]
     Active Substance: VENETOCLAX
     Indication: PRODUCT USED FOR UNKNOWN INDICATION
     Route: 048
     Dates: start: 20200302, end: 20200323

REACTIONS (3)
  - Pneumonia [Unknown]
  - Off label use [Unknown]
  - Coronavirus infection [Fatal]

NARRATIVE: CASE EVENT DATE: 2020
